FAERS Safety Report 5207130-5 (Version None)
Quarter: 2007Q1

REPORT INFORMATION
  Report Type: 
  Country: None (occurrence: None)
  Receive Date: 20070112
  Receipt Date: 20070102
  Transmission Date: 20070707
  Serious: Yes (Hospitalization)
  Sender: FDA-Public Use
  Company Number: US-ROCHE-471265

PATIENT
  Age: 60 Year
  Sex: Female
  Weight: 72.6 kg

DRUGS (12)
  1. CAPECITABINE [Suspect]
     Dosage: GIVEN ON DAYS 1-8 OF EACH 2-WEEK CYCLE.
     Route: 048
     Dates: start: 20061031, end: 20061107
  2. BEVACIZUMAB [Suspect]
     Dosage: GIVEN VIA 30-90 MINUTES IV INFUSION ON DAY 1 OF EACH 2-WEEK CYCLE.
     Route: 042
     Dates: start: 20061031, end: 20061031
  3. OXALIPLATIN [Suspect]
     Dosage: GIVEN VIA 2 HOURS IV INFUSION ON DAY 1 OF EACH 2-WEEK CYCLE.
     Route: 042
     Dates: start: 20061031, end: 20061031
  4. MOUTHWASH NOS [Concomitant]
     Dosage: DRUG REPORTED AS MAGIC MOUTHWASH.
     Dates: start: 20061115, end: 20061119
  5. LOPERAMIDE HCL [Concomitant]
     Dates: start: 20061114, end: 20061118
  6. TYLENOL [Concomitant]
     Dates: start: 20061111, end: 20061119
  7. ZOFRAN [Concomitant]
     Dates: start: 20061110, end: 20061120
  8. DIOVAN [Concomitant]
     Dates: start: 20040615
  9. ACTONEL [Concomitant]
     Dates: start: 20040615
  10. GLUCOSAMINE [Concomitant]
     Dates: start: 20040615
  11. ASPIRIN [Concomitant]
     Dates: start: 20040615
  12. 1 CONCOMITANT DRUG [Concomitant]
     Dosage: TRADE NAME ILLEGIBLE
     Dates: start: 20040615

REACTIONS (3)
  - CATHETER RELATED INFECTION [None]
  - MUCOSAL INFLAMMATION [None]
  - SMALL INTESTINAL OBSTRUCTION [None]
